FAERS Safety Report 10223929 (Version 2)
Quarter: 2014Q4

REPORT INFORMATION
  Report Type: Report from Study
  Country: CA (occurrence: CA)
  Receive Date: 20140609
  Receipt Date: 20141106
  Transmission Date: 20150528
  Serious: Yes (Hospitalization)
  Sender: FDA-Public Use
  Company Number: CA-JNJFOC-20140519781

PATIENT
  Age: 76 Year
  Sex: Male

DRUGS (1)
  1. STELARA [Suspect]
     Active Substance: USTEKINUMAB
     Indication: PSORIASIS
     Route: 058
     Dates: start: 20120430

REACTIONS (1)
  - Immune thrombocytopenic purpura [Recovering/Resolving]

NARRATIVE: CASE EVENT DATE: 20140506
